FAERS Safety Report 16122169 (Version 2)
Quarter: 2019Q4

REPORT INFORMATION
  Report Type: Spontaneous
  Country: US (occurrence: US)
  Receive Date: 20190327
  Receipt Date: 20191213
  Transmission Date: 20200122
  Serious: No
  Sender: FDA-Public Use
  Company Number: PHEH2019US012722

PATIENT
  Sex: Female

DRUGS (3)
  1. XERAMEL [Suspect]
     Active Substance: ERYTHROMYCIN ESTOLATE
     Indication: CARCINOID SYNDROME
     Dosage: 250 MG, TID
     Route: 065
  2. XERAMEL [Suspect]
     Active Substance: ERYTHROMYCIN ESTOLATE
     Dosage: 250 MG, BID
     Route: 065
  3. AFINITOR [Suspect]
     Active Substance: EVEROLIMUS
     Indication: CARCINOID SYNDROME
     Dosage: UNK UNK, QD
     Route: 048

REACTIONS (3)
  - Diarrhoea [Unknown]
  - Infection [Unknown]
  - Arthropod sting [Unknown]
